FAERS Safety Report 8244999-4 (Version None)
Quarter: 2012Q1

REPORT INFORMATION
  Report Type: 
  Country: None (occurrence: None)
  Receive Date: 20120329
  Receipt Date: 20120322
  Transmission Date: 20120608
  Serious: Yes (Disabling)
  Sender: FDA-Public Use
  Company Number: US-ABBOTT-12P-163-0916693-00

PATIENT
  Sex: Male
  Weight: 68.1 kg

DRUGS (9)
  1. HUMIRA [Suspect]
     Dates: start: 20090101
  2. FLECAINIDE ACETATE [Concomitant]
     Indication: ATRIAL FIBRILLATION
  3. HUMIRA [Suspect]
     Indication: PSORIATIC ARTHROPATHY
     Route: 058
     Dates: start: 20040101, end: 20081201
  4. HUMIRA [Suspect]
     Dates: start: 20081201, end: 20090101
  5. LIOTHYRONINE SODIUM [Concomitant]
     Indication: TRI-IODOTHYRONINE
  6. TAMSULOSIN HCL [Concomitant]
     Indication: BENIGN PROSTATIC HYPERPLASIA
  7. LEVOXYL [Concomitant]
     Indication: PRODUCT USED FOR UNKNOWN INDICATION
  8. DILTIAZEM HCL [Concomitant]
     Indication: ATRIAL FIBRILLATION
  9. HUMIRA [Suspect]
     Dates: start: 20090101, end: 20090101

REACTIONS (5)
  - FATIGUE [None]
  - MUSCLE CONTRACTIONS INVOLUNTARY [None]
  - MUSCULAR WEAKNESS [None]
  - AMYOTROPHIC LATERAL SCLEROSIS [None]
  - NASOPHARYNGITIS [None]
